FAERS Safety Report 7797767-1 (Version None)
Quarter: 2011Q4

REPORT INFORMATION
  Report Type: 
  Country: None (occurrence: None)
  Receive Date: 20111005
  Receipt Date: 20110928
  Transmission Date: 20120403
  Serious: Yes (Hospitalization, Other)
  Sender: FDA-Public Use
  Company Number: PHHY2011BR86602

PATIENT
  Sex: Male
  Weight: 60 kg

DRUGS (3)
  1. PROLOPA [Concomitant]
     Indication: PARKINSON'S DISEASE
     Dosage: 200/50MG 1 TABLET 3 TIMES A DAY
  2. PRAMIPEXOLE DIHYDROCHLORIDE [Concomitant]
     Indication: PARKINSON'S DISEASE
     Dosage: 1 DF, TID
     Route: 048
  3. COMTAN [Suspect]
     Indication: PARKINSON'S DISEASE
     Dosage: 1 DF, BID
     Route: 048
     Dates: start: 20110917

REACTIONS (11)
  - DYSKINESIA [None]
  - OCULAR ICTERUS [None]
  - PARKINSON'S DISEASE [None]
  - YELLOW SKIN [None]
  - SALIVA DISCOLOURATION [None]
  - ABDOMINAL PAIN [None]
  - MUSCLE SPASMS [None]
  - DECREASED APPETITE [None]
  - PAIN IN EXTREMITY [None]
  - CHROMATURIA [None]
  - PYREXIA [None]
